FAERS Safety Report 19847490 (Version 7)
Quarter: 2022Q1

REPORT INFORMATION
  Report Type: Report from Study
  Country: AU (occurrence: AU)
  Receive Date: 20210917
  Receipt Date: 20220115
  Transmission Date: 20220423
  Serious: Yes (Hospitalization)
  Sender: FDA-Public Use
  Company Number: NVSC2021AU210262

PATIENT
  Age: 8 Year
  Sex: Male
  Weight: 24.1 kg

DRUGS (12)
  1. TOPOTECAN [Suspect]
     Active Substance: TOPOTECAN HYDROCHLORIDE
     Indication: Neoplasm malignant
     Dosage: 0.75 MG/M2, MAXIMUM 5 DAYS EVERY 21 DAYS
     Route: 042
     Dates: start: 20210827
  2. TOPOTECAN [Suspect]
     Active Substance: TOPOTECAN HYDROCHLORIDE
     Dosage: 0.38 MG, QD
     Route: 042
     Dates: start: 20210827
  3. CYCLOPHOSPHAMIDE [Suspect]
     Active Substance: CYCLOPHOSPHAMIDE
     Indication: Neoplasm malignant
     Dosage: 250 MG/M2 (MAXIMUM 5 DAYS EVERY 21 DAYS)
     Route: 042
     Dates: start: 20210827
  4. CYCLOPHOSPHAMIDE [Suspect]
     Active Substance: CYCLOPHOSPHAMIDE
     Indication: Neuroblastoma
     Dosage: 125 MG, QD
     Route: 042
     Dates: start: 20210827
  5. VENETOCLAX [Suspect]
     Active Substance: VENETOCLAX
     Indication: Neoplasm malignant
     Dosage: 170 MG QD,  (170 MG,1 IN 1 D) MAXIMUM 5 DAYS
     Route: 048
     Dates: start: 20210825, end: 20210825
  6. VENETOCLAX [Suspect]
     Active Substance: VENETOCLAX
     Indication: Neuroblastoma
     Dosage: 350 MG, QD, (350 MG,1 IN 1 D) (DAYS 1 TO 10 OF EACH 21 DAY CYCLE)
     Route: 048
     Dates: start: 20210825
  7. VENETOCLAX [Suspect]
     Active Substance: VENETOCLAX
     Dosage: 350 MG, QD, (350 MG,1 IN 1 D) (DAYS 1 TO 10 OF EACH 21 DAY CYCLE)
     Route: 048
     Dates: start: 20210826
  8. BACTRIM [Concomitant]
     Active Substance: SULFAMETHOXAZOLE\TRIMETHOPRIM
     Indication: Pneumocystis jirovecii pneumonia
     Dosage: 120 MG (60 MG,2 IN 1 D)
     Route: 048
     Dates: start: 20211006
  9. ZOFRAN [Concomitant]
     Active Substance: ONDANSETRON HYDROCHLORIDE
     Indication: Prophylaxis of nausea and vomiting
     Dosage: 4 MG, PRN (AS REQUIRED)
     Route: 042
     Dates: start: 20210827
  10. ZOFRAN [Concomitant]
     Active Substance: ONDANSETRON HYDROCHLORIDE
     Dosage: 5 MG, PRN (AS REQUIRED)
     Route: 065
     Dates: start: 20210828
  11. MESNA [Concomitant]
     Active Substance: MESNA
     Indication: Prophylaxis
     Dosage: 50 MG, QD
     Route: 042
     Dates: start: 20211122
  12. ROMIPLOSTIM [Concomitant]
     Active Substance: ROMIPLOSTIM
     Indication: Platelet count decreased
     Dosage: 28.5714 MCG (200 MCG,1 IN 1 WK)
     Route: 058
     Dates: start: 20211119

REACTIONS (12)
  - Febrile neutropenia [Recovered/Resolved]
  - Lethargy [Unknown]
  - Pallor [Unknown]
  - Cough [Unknown]
  - Pyrexia [Recovered/Resolved]
  - Diarrhoea [Unknown]
  - Cystitis haemorrhagic [Unknown]
  - Suprapubic pain [Unknown]
  - Dysuria [Unknown]
  - Nausea [Unknown]
  - Febrile neutropenia [Recovered/Resolved]
  - Pyrexia [Recovered/Resolved]

NARRATIVE: CASE EVENT DATE: 20210905
